FAERS Safety Report 14460700 (Version 2)
Quarter: 2018Q1

REPORT INFORMATION
  Report Type: Spontaneous
  Country: US (occurrence: US)
  Receive Date: 20180130
  Receipt Date: 20180201
  Transmission Date: 20180509
  Serious: Yes (Death)
  Sender: FDA-Public Use
  Company Number: US-PFIZER INC-2018039128

PATIENT
  Age: 55 Year
  Sex: Male

DRUGS (4)
  1. GINKGO BILOBA [Interacting]
     Active Substance: GINKGO
     Indication: SUPPLEMENTATION THERAPY
  2. GINKGO BILOBA [Interacting]
     Active Substance: GINKGO
     Indication: COGNITIVE DISORDER
     Dosage: UNK
  3. DILANTIN [Suspect]
     Active Substance: PHENYTOIN
     Indication: EPILEPSY
     Dosage: UNK
  4. DEPAKOTE [Interacting]
     Active Substance: DIVALPROEX SODIUM
     Indication: EPILEPSY
     Dosage: UNK

REACTIONS (3)
  - Drug level decreased [Fatal]
  - Drug interaction [Fatal]
  - Seizure [Fatal]
